FAERS Safety Report 18392297 (Version 2)
Quarter: 2020Q4

REPORT INFORMATION
  Report Type: Spontaneous
  Country: DE (occurrence: DE)
  Receive Date: 20201016
  Receipt Date: 20201217
  Transmission Date: 20210114
  Serious: Yes (Hospitalization)
  Sender: FDA-Public Use
  Company Number: DE-BIOGEN-2020BI00934480

PATIENT
  Age: 11 Year
  Sex: Male
  Weight: 45 kg

DRUGS (3)
  1. SPINRAZA [Suspect]
     Active Substance: NUSINERSEN
     Indication: SPINAL MUSCULAR ATROPHY
     Route: 037
     Dates: start: 20171109
  2. MOVICOL JUNIOR [Concomitant]
     Indication: CONSTIPATION
     Route: 065
  3. MACROGOL JUNIOR [Concomitant]
     Indication: CONSTIPATION
     Dosage: 1 SACHET DAILY
     Route: 065

REACTIONS (2)
  - Pneumonia viral [Recovered/Resolved]
  - Otitis media [Recovered/Resolved]

NARRATIVE: CASE EVENT DATE: 20180120
